FAERS Safety Report 9322557 (Version 2)
Quarter: 2013Q2

REPORT INFORMATION
  Report Type: Spontaneous
  Country: JP (occurrence: JP)
  Receive Date: 20130531
  Receipt Date: 20130621
  Transmission Date: 20140414
  Serious: No
  Sender: FDA-Public Use
  Company Number: JP-ASTRAZENECA-2013SE36540

PATIENT
  Age: 68 Year
  Sex: Male

DRUGS (8)
  1. NEXIUM [Suspect]
     Indication: GASTROOESOPHAGEAL REFLUX DISEASE
     Route: 048
     Dates: start: 201209, end: 20130520
  2. MEDICON [Concomitant]
     Dosage: DOSE UNKNOWN
     Route: 048
     Dates: start: 201209, end: 20130520
  3. EURODIN [Concomitant]
     Dosage: DOSE UNKNOWN
     Route: 048
     Dates: start: 201209, end: 20130520
  4. ATELEC [Concomitant]
     Dosage: DOSE UNKNOWN
     Route: 065
  5. GASMOTIN [Concomitant]
     Dosage: DOSE UNKNOWN
     Route: 065
     Dates: end: 20130520
  6. BLOPRESS [Concomitant]
     Dosage: DOSE UNKNOWN
     Route: 065
     Dates: end: 20130520
  7. MUCOSTA [Concomitant]
     Dosage: DOSE UNKNOWN
     Route: 065
     Dates: end: 20130520
  8. LOXONIN [Concomitant]
     Dosage: DOSE UNKNOWN
     Route: 065
     Dates: end: 20130520

REACTIONS (1)
  - Blood creatine phosphokinase increased [Recovering/Resolving]
